FAERS Safety Report 13430384 (Version 2)
Quarter: 2017Q2

REPORT INFORMATION
  Report Type: Spontaneous
  Country: US (occurrence: US)
  Receive Date: 20170412
  Receipt Date: 20170515
  Transmission Date: 20170830
  Serious: No
  Sender: FDA-Public Use
  Company Number: US-PFIZER INC-2017149854

PATIENT
  Age: 60 Year
  Sex: Male
  Weight: 86.16 kg

DRUGS (5)
  1. ZOLOFT [Suspect]
     Active Substance: SERTRALINE HYDROCHLORIDE
     Indication: DEPRESSION
     Dosage: 100 MG, UNK
     Route: 048
  2. AMLODIPINE [Concomitant]
     Active Substance: AMLODIPINE BESYLATE
     Indication: HYPERTENSION
     Dosage: 10 MG, 1X/DAY (10 MG PILL BY MOUTH ONCE A DAY)
     Route: 048
  3. ZOLOFT [Suspect]
     Active Substance: SERTRALINE HYDROCHLORIDE
     Dosage: 25 MG, 2X/DAY (25 MG PILL BY MOUTH IN THE MORNING AND AFTERNOON)
     Route: 048
     Dates: end: 20170401
  4. ZOLOFT [Suspect]
     Active Substance: SERTRALINE HYDROCHLORIDE
     Dosage: 50 MG, UNK (CUTTING THE 100 MG PILL IN HALF)
     Route: 048
     Dates: start: 2002
  5. RAMIPRIL. [Concomitant]
     Active Substance: RAMIPRIL
     Indication: HYPERTENSION
     Dosage: 10 MG, 1X/DAY (10 MG CAPSULE BY MOUTH IN THE MORNING)
     Route: 048

REACTIONS (4)
  - Suspected counterfeit product [Unknown]
  - Dysstasia [Recovered/Resolved]
  - Dizziness [Recovered/Resolved]
  - Nervousness [Unknown]

NARRATIVE: CASE EVENT DATE: 201704
